FAERS Safety Report 8713248 (Version 2)
Quarter: 2012Q4

REPORT INFORMATION
  Report Type: 
  Country: GB (occurrence: GB)
  Receive Date: 20120808
  Receipt Date: 20120912
  Transmission Date: 20130627
  Serious: No
  Sender: FDA-Public Use
  Company Number: GB-ROCHE-1096169

PATIENT
  Age: 65 Year
  Sex: Female

DRUGS (3)
  1. AVASTIN [Suspect]
     Indication: OVARIAN CANCER
     Route: 042
     Dates: start: 20120217
  2. PACLITAXEL [Concomitant]
     Indication: OVARIAN CANCER
     Route: 042
     Dates: start: 20111216, end: 20120330
  3. CARBOPLATIN [Concomitant]
     Indication: OVARIAN CANCER
     Dosage: reported as ANC 5
     Route: 042
     Dates: start: 20111216, end: 20120330

REACTIONS (1)
  - Proteinuria [Recovering/Resolving]
